FAERS Safety Report 23745243 (Version 2)
Quarter: 2024Q2

REPORT INFORMATION
  Report Type: Report from Study
  Country: US (occurrence: US)
  Receive Date: 20240416
  Receipt Date: 20240608
  Transmission Date: 20240716
  Serious: Yes (Other)
  Sender: FDA-Public Use
  Company Number: US-ABBVIE-5720072

PATIENT
  Age: 52 Year
  Sex: Female

DRUGS (2)
  1. RINVOQ [Suspect]
     Active Substance: UPADACITINIB
     Indication: Axial spondyloarthritis
     Route: 048
     Dates: start: 20231012
  2. RINVOQ [Suspect]
     Active Substance: UPADACITINIB
     Indication: Axial spondyloarthritis
     Dosage: LAST ADMIN DATE- 2023
     Route: 048
     Dates: start: 20230828

REACTIONS (4)
  - Shoulder operation [Recovering/Resolving]
  - Surgery [Recovered/Resolved]
  - Seroma [Unknown]
  - Axial spondyloarthritis [Recovering/Resolving]

NARRATIVE: CASE EVENT DATE: 20240308
